FAERS Safety Report 10759915 (Version 1)
Quarter: 2015Q1

REPORT INFORMATION
  Report Type: Spontaneous
  Country: US (occurrence: US)
  Receive Date: 20150203
  Receipt Date: 20150203
  Transmission Date: 20150721
  Serious: Yes (Hospitalization)
  Sender: FDA-Public Use
  Company Number: US-SPECTRUM PHARMACEUTICALS, INC.-14-F-US-00255

PATIENT
  Age: 71 Year
  Sex: Male
  Weight: 80.36 kg

DRUGS (4)
  1. FOLOTYN [Suspect]
     Active Substance: PRALATREXATE
     Indication: PERIPHERAL T-CELL LYMPHOMA UNSPECIFIED
     Dosage: 40 MG, SINGLE
     Route: 065
     Dates: start: 20140729, end: 20140729
  2. ONDANSETRON [Concomitant]
     Active Substance: ONDANSETRON
     Indication: PRODUCT USED FOR UNKNOWN INDICATION
     Dosage: UNK
     Route: 065
     Dates: start: 20140603
  3. PREDNISONE. [Concomitant]
     Active Substance: PREDNISONE
     Indication: PRODUCT USED FOR UNKNOWN INDICATION
     Dosage: UNK
     Route: 065
  4. FOLIC ACID. [Concomitant]
     Active Substance: FOLIC ACID
     Indication: PRODUCT USED FOR UNKNOWN INDICATION
     Dosage: UNK
     Dates: start: 20140603

REACTIONS (4)
  - Anaemia [Unknown]
  - Fatigue [Unknown]
  - Neutropenia [Unknown]
  - Thrombocytopenia [Unknown]

NARRATIVE: CASE EVENT DATE: 20140804
